FAERS Safety Report 6183781-9 (Version None)
Quarter: 2009Q2

REPORT INFORMATION
  Report Type: 
  Country: None (occurrence: None)
  Receive Date: 20090508
  Receipt Date: 20090401
  Transmission Date: 20091009
  Serious: No
  Sender: FDA-Public Use
  Company Number: A0776635A

PATIENT
  Sex: Male

DRUGS (2)
  1. ALTABAX [Suspect]
     Indication: IMPETIGO
     Dosage: 1APP SINGLE DOSE
     Route: 061
  2. NO CONCURRENT MEDICATION [Concomitant]

REACTIONS (1)
  - BURNING SENSATION [None]
